FAERS Safety Report 4313324-3 (Version None)
Quarter: 2004Q1

REPORT INFORMATION
  Report Type: 
  Country: None (occurrence: None)
  Receive Date: 20040304
  Receipt Date: 20040226
  Transmission Date: 20041129
  Serious: Yes (Hospitalization)
  Sender: FDA-Public Use
  Company Number: SE-JNJFOC-20040203547

PATIENT
  Age: 80 Year
  Sex: Male

DRUGS (6)
  1. GALANTAMINE (GALANTAMINE) TABLETS [Suspect]
     Indication: SENILE DEMENTIA
     Dosage: 8 MG, 2 IN 1 DAY, ORAL;  ORAL
     Route: 048
     Dates: start: 20031211, end: 20040109
  2. HUMIRA [Suspect]
     Indication: RHEUMATOID ARTHRITIS
     Dosage: 40 MG, 1 IN 1 DAY, INTRAVENOUS
     Route: 042
     Dates: start: 20031223, end: 20031223
  3. ENBREL [Suspect]
     Indication: RHEUMATOID ARTHRITIS
     Dosage: 2 MLW ML W
     Dates: start: 20040120, end: 20040123
  4. PREDNISOLONE [Concomitant]
  5. NAPROXEN [Concomitant]
  6. CALCICHEW (CALCIUM CARBONATE) [Concomitant]

REACTIONS (9)
  - BLOOD CREATINE INCREASED [None]
  - EXANTHEM [None]
  - HAEMOGLOBIN DECREASED [None]
  - INFECTION [None]
  - LABORATORY TEST ABNORMAL [None]
  - OEDEMA PERIPHERAL [None]
  - RASH PUSTULAR [None]
  - SKIN ULCER [None]
  - SKIN ULCER HAEMORRHAGE [None]
